FAERS Safety Report 4453422-7 (Version None)
Quarter: 2004Q3

REPORT INFORMATION
  Report Type: 
  Country: None (occurrence: None)
  Receive Date: 20040920
  Receipt Date: 20040903
  Transmission Date: 20050211
  Serious: Yes (Other)
  Sender: FDA-Public Use
  Company Number: BE-JNJFOC-20040701197

PATIENT
  Age: 43 Year
  Sex: Female

DRUGS (1)
  1. CISAPRIDE [Suspect]
     Route: 049

REACTIONS (8)
  - C-REACTIVE PROTEIN INCREASED [None]
  - HEPATIC STEATOSIS [None]
  - HERNIA [None]
  - NAUSEA [None]
  - PAIN [None]
  - RED BLOOD CELLS URINE [None]
  - URINARY TRACT INFECTION [None]
  - WHITE BLOOD CELLS URINE POSITIVE [None]
